FAERS Safety Report 4620482-X (Version None)
Quarter: 2005Q1

REPORT INFORMATION
  Report Type: 
  Country: None (occurrence: None)
  Receive Date: 20050324
  Receipt Date: 20050318
  Transmission Date: 20050727
  Serious: Yes (Other)
  Sender: FDA-Public Use
  Company Number: 2005-03-1208

PATIENT
  Sex: Female
  Weight: 58.0604 kg

DRUGS (1)
  1. CLARITIN-D ALLERGY/CONGESTIOON 12 HR (LORATADINE 5MG/EXTENDED RELEASE [Suspect]
     Indication: RHINITIS ALLERGIC
     Dosage: PRN ORALK
     Route: 048
     Dates: end: 20050317

REACTIONS (1)
  - GRAND MAL CONVULSION [None]
